FAERS Safety Report 4403510-6 (Version None)
Quarter: 2004Q2

REPORT INFORMATION
  Report Type: 
  Country: None (occurrence: None)
  Receive Date: 20040618
  Receipt Date: 20040220
  Transmission Date: 20050107
  Serious: No
  Sender: FDA-Public Use
  Company Number: US-JNJFOC-20040205529

PATIENT
  Age: 36 Year
  Sex: Female
  Weight: 72.5755 kg

DRUGS (5)
  1. ORTHO EVRA [Suspect]
     Indication: CONTRACEPTION
     Dosage: 1 DOSE(S), 3 IN 4 WEEK, TRANSDERMAL
     Route: 062
     Dates: start: 20021201, end: 20030701
  2. PRENATAL VITAMINS (PRENATAL VITAMINS) UNSPECIFIED [Concomitant]
  3. ZANTAC (RANITIDINE HYDROCHLORIDE) UNSPECIFIED [Concomitant]
  4. VITAMIN C (ASCORBIC ACID) UNSPECIFIED [Concomitant]
  5. IRON (IRON) UNSPECIFIED [Concomitant]

REACTIONS (6)
  - CARDIAC MURMUR [None]
  - DRUG EXPOSURE DURING PREGNANCY [None]
  - DYSPEPSIA [None]
  - MENSTRUATION IRREGULAR [None]
  - TOOTH EXTRACTION [None]
  - UNINTENDED PREGNANCY [None]
